FAERS Safety Report 20364834 (Version 1)
Quarter: 2022Q1

REPORT INFORMATION
  Report Type: Spontaneous
  Country: US (occurrence: US)
  Receive Date: 20220122
  Receipt Date: 20220122
  Transmission Date: 20220423
  Serious: Yes (Hospitalization, Other)
  Sender: FDA-Public Use
  Company Number: US-AMGEN-USASP2022008381

PATIENT
  Age: 52 Year
  Sex: Female

DRUGS (6)
  1. AIMOVIG [Suspect]
     Active Substance: ERENUMAB-AOOE
     Indication: Migraine prophylaxis
     Dosage: 140 MILLIGRAM, QMO
     Route: 065
     Dates: start: 202110, end: 202112
  2. COLACE [Concomitant]
     Active Substance: DOCUSATE SODIUM
     Dosage: UNK
  3. MAG CITRATE [Concomitant]
     Dosage: UNK
  4. GOLYTELY [Concomitant]
     Active Substance: POLYETHYLENE GLYCOL 3350\POTASSIUM CHLORIDE\SODIUM BICARBONATE\SODIUM CHLORIDE\SODIUM SULFATE
     Dosage: UNK
  5. UBRELVY [Concomitant]
     Active Substance: UBROGEPANT
     Dosage: UNK
  6. BOTOX [Concomitant]
     Active Substance: ONABOTULINUMTOXINA
     Dosage: UNK

REACTIONS (12)
  - Constipation [Recovering/Resolving]
  - Nausea [Recovering/Resolving]
  - Gait inability [Recovering/Resolving]
  - Loss of consciousness [Recovering/Resolving]
  - Cyclosporidium infection [Recovering/Resolving]
  - Gastrointestinal pain [Recovering/Resolving]
  - Therapeutic product effect incomplete [Unknown]
  - Gastric dilatation [Recovering/Resolving]
  - Clostridium test positive [Recovering/Resolving]
  - Viral test positive [Recovering/Resolving]
  - Migraine [Recovering/Resolving]
  - Escherichia test positive [Recovering/Resolving]

NARRATIVE: CASE EVENT DATE: 20210101
